FAERS Safety Report 4365068-X (Version None)
Quarter: 2004Q2

REPORT INFORMATION
  Report Type: 
  Country: None (occurrence: None)
  Receive Date: 20040521
  Receipt Date: 20040116
  Transmission Date: 20050107
  Serious: No
  Sender: FDA-Public Use
  Company Number: A01200400296

PATIENT
  Sex: Female

DRUGS (1)
  1. PLAQUENIL [Suspect]
     Dosage: ORAL
     Route: 048

REACTIONS (2)
  - RETINAL DEPOSITS [None]
  - VISUAL DISTURBANCE [None]
